FAERS Safety Report 13375641 (Version 1)
Quarter: 2017Q1

REPORT INFORMATION
  Report Type: Spontaneous
  Country: US (occurrence: US)
  Receive Date: 20170328
  Receipt Date: 20170328
  Transmission Date: 20170429
  Serious: Yes (Hospitalization, Other)
  Sender: FDA-Public Use
  Company Number: US-ROCHE-1910439

PATIENT
  Age: 28 Year
  Sex: Male
  Weight: 88.4 kg

DRUGS (9)
  1. TRAZODONE [Suspect]
     Active Substance: TRAZODONE HYDROCHLORIDE
     Indication: PRODUCT USED FOR UNKNOWN INDICATION
     Dosage: PRN
     Route: 065
  2. VISTARIL [Concomitant]
     Active Substance: HYDROXYZINE PAMOATE
     Route: 065
  3. PROZAC [Concomitant]
     Active Substance: FLUOXETINE HYDROCHLORIDE
  4. SEROQUEL [Concomitant]
     Active Substance: QUETIAPINE FUMARATE
  5. VIVITROL [Suspect]
     Active Substance: NALTREXONE
     Dosage: ONGOING: YES
     Route: 065
     Dates: start: 20170225
  6. TRAZODONE [Suspect]
     Active Substance: TRAZODONE HYDROCHLORIDE
     Dosage: PRN
     Route: 065
  7. VIVITROL [Suspect]
     Active Substance: NALTREXONE
     Indication: DRUG DEPENDENCE
     Dosage: ONGOING: YES
     Route: 030
     Dates: start: 20170128
  8. WELLBUTRIN XL [Interacting]
     Active Substance: BUPROPION HYDROCHLORIDE
     Indication: PRODUCT USED FOR UNKNOWN INDICATION
     Route: 065
  9. VALIUM [Suspect]
     Active Substance: DIAZEPAM
     Indication: PRODUCT USED FOR UNKNOWN INDICATION
     Route: 065

REACTIONS (18)
  - Fatigue [Unknown]
  - Drug dependence [Unknown]
  - Euphoric mood [Unknown]
  - Blood creatinine increased [Unknown]
  - Blood potassium increased [Unknown]
  - Restlessness [Unknown]
  - Gastroenteritis viral [Unknown]
  - Drug screen positive [Unknown]
  - Neuroleptic malignant syndrome [Unknown]
  - Blood phosphorus abnormal [Unknown]
  - Vomiting [Unknown]
  - Pyrexia [Unknown]
  - Malaise [Unknown]
  - Drug interaction [Unknown]
  - Lethargy [Unknown]
  - Somnolence [Unknown]
  - Mental disorder [Unknown]
  - Sluggishness [Unknown]

NARRATIVE: CASE EVENT DATE: 20170207
